FAERS Safety Report 7435220-5 (Version None)
Quarter: 2011Q2

REPORT INFORMATION
  Report Type: 
  Country: None (occurrence: None)
  Receive Date: 20110415
  Receipt Date: 20110331
  Transmission Date: 20111010
  Serious: Yes (Death, Other)
  Sender: FDA-Public Use
  Company Number: SP-2006-003117

PATIENT
  Age: 44 Year
  Sex: Male

DRUGS (5)
  1. BENICAR [Suspect]
     Indication: HYPERTENSION
     Dosage: 2400 MG, ONCE, ORAL
     Route: 048
     Dates: start: 20060101
  2. NORVASC [Suspect]
     Indication: HYPERTENSION
  3. AMLODIPINE [Suspect]
     Indication: HYPERTENSION
     Dosage: 900 MG, ONCE, ORAL
     Route: 048
     Dates: start: 20060101
  4. EFFEXOR [Suspect]
     Indication: PRODUCT USED FOR UNKNOWN INDICATION
  5. AMITRIPTYLINE HCL [Suspect]
     Indication: PRODUCT USED FOR UNKNOWN INDICATION
     Dosage: ORAL
     Route: 048

REACTIONS (8)
  - CONTUSION [None]
  - EXCORIATION [None]
  - MULTIPLE DRUG OVERDOSE INTENTIONAL [None]
  - FOAMING AT MOUTH [None]
  - TOXICITY TO VARIOUS AGENTS [None]
  - PULMONARY OEDEMA [None]
  - COMPLETED SUICIDE [None]
  - PULMONARY CONGESTION [None]
